FAERS Safety Report 21541543 (Version 1)
Quarter: 2022Q4

REPORT INFORMATION
  Report Type: Other
  Country: CN (occurrence: None)
  Receive Date: 20221102
  Receipt Date: 20221102
  Transmission Date: 20230113
  Serious: Yes (Death, Hospitalization, Other)
  Sender: FDA-Public Use
  Company Number: CN-Navinta LLC-000298

PATIENT
  Age: 59 Year
  Sex: Male

DRUGS (7)
  1. RIBAVIRIN [Suspect]
     Active Substance: RIBAVIRIN
     Indication: Rabies
     Dosage: 0.5 G INFUSED TWICE PER DAY
  2. AMANTADINE [Suspect]
     Active Substance: AMANTADINE
     Indication: Rabies
     Dosage: 0.2 G PER ORAL ONCE PER DAY
     Route: 048
  3. PROPOFOL [Concomitant]
     Active Substance: PROPOFOL
     Indication: Sedation
  4. MIDAZOLAM [Concomitant]
     Active Substance: MIDAZOLAM
     Indication: Sedation
  5. EPINEPHRINE [Concomitant]
     Active Substance: EPINEPHRINE
     Indication: Product used for unknown indication
  6. NOREPINEPHRINE [Concomitant]
     Active Substance: NOREPINEPHRINE
     Indication: Product used for unknown indication
     Dosage: 2.7 UG/KG/MIN
  7. PENEHYCLIDINE HYDROCHLORIDE [Concomitant]
     Active Substance: PENEHYCLIDINE HYDROCHLORIDE
     Indication: Pulmonary oedema
     Dosage: HYPODERMIC INJECTIONS OF PENEHYCLIDINE, 1 MG DAILY

REACTIONS (7)
  - Drug ineffective [Fatal]
  - Coma [Fatal]
  - Disease progression [Fatal]
  - Salivary hypersecretion [Fatal]
  - Pulmonary oedema [Fatal]
  - Rabies [Fatal]
  - Hypotension [Fatal]
